FAERS Safety Report 4828509-7 (Version None)
Quarter: 2005Q4

REPORT INFORMATION
  Report Type: 
  Country: None (occurrence: None)
  Receive Date: 20051110
  Receipt Date: 20051031
  Transmission Date: 20060501
  Serious: No
  Sender: FDA-Public Use
  Company Number: RS005569-CDN

PATIENT
  Age: 76 Year
  Sex: Female

DRUGS (2)
  1. RABEPRAZOLE SODIUM [Suspect]
     Indication: GASTRITIS
     Dosage: ORAL
     Route: 048
  2. LIPITOR [Concomitant]

REACTIONS (1)
  - ULCER [None]
